FAERS Safety Report 5237876-4 (Version None)
Quarter: 2007Q1

REPORT INFORMATION
  Report Type: 
  Country: None (occurrence: None)
  Receive Date: 20070209
  Receipt Date: 20070125
  Transmission Date: 20070707
  Serious: Yes (Other)
  Sender: FDA-Public Use
  Company Number: 2007US-05671

PATIENT
  Age: 22 Year
  Sex: 0

DRUGS (1)
  1. ISOTRETINOIN [Suspect]
     Dosage: 40 MG, ORAL
     Route: 048

REACTIONS (1)
  - SURGERY [None]
